FAERS Safety Report 10683456 (Version 1)
Quarter: 2014Q4

REPORT INFORMATION
  Report Type: Spontaneous
  Country: US (occurrence: US)
  Receive Date: 20141230
  Receipt Date: 20141230
  Transmission Date: 20150529
  Serious: No
  Sender: FDA-Public Use
  Company Number: US-TARO-2014TAR00537

PATIENT
  Age: 67 Year
  Sex: Male
  Weight: 77.98 kg

DRUGS (5)
  1. VARIOUS UNSPECIFIED PRESCRIPTION MEDICATIONS [Concomitant]
  2. EYE REDNESS RELIEF DROPS [Concomitant]
  3. FLUOROURACIL TOPICAL SOLUTION USP 2% [Suspect]
     Active Substance: FLUOROURACIL
     Dosage: UNK
     Route: 031
     Dates: start: 20141103, end: 20141103
  4. FLUOROURACIL TOPICAL SOLUTION USP 2% [Suspect]
     Active Substance: FLUOROURACIL
     Indication: DRY SKIN
     Dosage: UNK, 1X/DAY
     Route: 061
     Dates: start: 201410
  5. TOBRAMYCIN 10% SOLUTION [Concomitant]

REACTIONS (4)
  - Incorrect route of drug administration [Recovered/Resolved]
  - Eye irritation [Recovering/Resolving]
  - Eye inflammation [Not Recovered/Not Resolved]
  - Ocular hyperaemia [Not Recovered/Not Resolved]

NARRATIVE: CASE EVENT DATE: 20141103
